FAERS Safety Report 12266237 (Version 1)
Quarter: 2016Q2

REPORT INFORMATION
  Report Type: Spontaneous
  Country: US (occurrence: None)
  Receive Date: 20160413
  Receipt Date: 20160413
  Transmission Date: 20160815
  Serious: Yes (Other)
  Sender: FDA-Public Use
  Company Number: None

PATIENT
  Age: 55 Year
  Sex: Female
  Weight: 61.69 kg

DRUGS (6)
  1. TERBINAFINE HCL 250 MG TABLET, 250 MG CAMBER PAHRMACE [Suspect]
     Active Substance: TERBINAFINE HYDROCHLORIDE
     Indication: ONYCHOMYCOSIS
     Dosage: 30 TABLET(S) ONCE A DAY TAKEN BY MOUTH
     Route: 048
     Dates: start: 20151116, end: 20151217
  2. CALCIUM [Concomitant]
     Active Substance: CALCIUM
  3. VITAMIN B12 [Concomitant]
     Active Substance: CYANOCOBALAMIN
  4. L-THYROXINE [Concomitant]
     Active Substance: LEVOTHYROXINE
  5. VITAMIN D [Concomitant]
     Active Substance: CHOLECALCIFEROL
  6. ESTROVEN [Concomitant]
     Active Substance: DIETARY SUPPLEMENT

REACTIONS (9)
  - Feeling abnormal [None]
  - Skin exfoliation [None]
  - Thermal burn [None]
  - Skin burning sensation [None]
  - Rash generalised [None]
  - Impaired work ability [None]
  - Blister [None]
  - Formication [None]
  - Fear [None]

NARRATIVE: CASE EVENT DATE: 20151215
